FAERS Safety Report 24780577 (Version 1)
Quarter: 2024Q4

REPORT INFORMATION
  Report Type: Spontaneous
  Country: US (occurrence: US)
  Receive Date: 20241227
  Receipt Date: 20241227
  Transmission Date: 20250115
  Serious: Yes (Death, Other)
  Sender: GLENMARK
  Company Number: US-GLENMARK PHARMACEUTICALS-2024GMK096609

PATIENT

DRUGS (4)
  1. LAMOTRIGINE [Suspect]
     Active Substance: LAMOTRIGINE
     Indication: Product used for unknown indication
     Dosage: UNK (INGESTION)
     Route: 048
  2. OLANZAPINE [Suspect]
     Active Substance: OLANZAPINE
     Indication: Product used for unknown indication
     Dosage: UNK (INGESTION)
     Route: 048
  3. AMLODIPINE [Suspect]
     Active Substance: AMLODIPINE BESYLATE
     Indication: Product used for unknown indication
     Dosage: UNK (INGESTION)
     Route: 048
  4. VALPROIC ACID [Suspect]
     Active Substance: VALPROIC ACID
     Indication: Product used for unknown indication
     Dosage: UNK (INGESTION)
     Route: 048

REACTIONS (1)
  - Death [Fatal]
